FAERS Safety Report 8923401 (Version 1)
Quarter: 2012Q4

REPORT INFORMATION
  Report Type: 
  Country: BR (occurrence: BR)
  Receive Date: 20121123
  Receipt Date: 20121123
  Transmission Date: 20130627
  Serious: Yes (Other)
  Sender: FDA-Public Use
  Company Number: PHHY2012BR105759

PATIENT
  Sex: Female
  Weight: 55 kg

DRUGS (9)
  1. LUDIOMIL [Suspect]
     Indication: DEPRESSION
     Dosage: 1 DF, daily
     Route: 048
  2. CALCIUM D3 [Suspect]
     Indication: OSTEOPOROSIS
     Dosage: 1 DF, daily
     Route: 048
     Dates: start: 2008
  3. ALENDRONATE [Suspect]
     Indication: OSTEOPOROSIS
     Dosage: 1 DF, weekly
     Route: 048
  4. ESTRADIOL [Suspect]
     Dosage: 1 DF, daily
     Route: 048
  5. RIVOTRIL [Suspect]
     Indication: SLEEP DISORDER
     Dosage: 1 DF, daily
     Route: 048
  6. EXODUS [Suspect]
     Dosage: 10 mg, UNK
  7. EVISTA [Suspect]
     Indication: OSTEOPOROSIS
     Dosage: 1 DF, daily
     Route: 048
  8. MELATONIN [Suspect]
     Indication: SLEEP DISORDER
     Dosage: 1 DF, daily
     Route: 048
  9. SELOZOK [Concomitant]
     Indication: HYPERTENSION
     Dosage: 1 DF, daily
     Route: 048

REACTIONS (5)
  - Hypertension [Recovered/Resolved]
  - Blood growth hormone decreased [Recovering/Resolving]
  - Asthenia [Not Recovered/Not Resolved]
  - Malaise [Not Recovered/Not Resolved]
  - Nausea [Not Recovered/Not Resolved]
